FAERS Safety Report 7469648-4 (Version None)
Quarter: 2011Q2

REPORT INFORMATION
  Report Type: 
  Country: None (occurrence: None)
  Receive Date: 20110506
  Receipt Date: 20110506
  Transmission Date: 20111010
  Serious: No
  Sender: FDA-Public Use
  Company Number: None

PATIENT
  Sex: Male
  Weight: 24.3 kg

DRUGS (5)
  1. ONCASPAR [Suspect]
     Dosage: 1666 MG
     Dates: end: 20110131
  2. DOXORUBICIN HYDROCHLORIDE [Suspect]
     Dosage: 25 MG
     Dates: end: 20110128
  3. DEXAMETHASONE [Suspect]
     Dosage: 35 MG
     Dates: end: 20110131
  4. METHOTREXATE [Suspect]
     Dosage: 15 MG
     Dates: end: 20110128
  5. VINCRISTINE SULFATE [Suspect]
     Dosage: 1.5 MG
     Dates: end: 20110128

REACTIONS (2)
  - URTICARIA [None]
  - INFUSION RELATED REACTION [None]
